FAERS Safety Report 6356423-7 (Version None)
Quarter: 2009Q3

REPORT INFORMATION
  Report Type: 
  Country: None (occurrence: None)
  Receive Date: 20090911
  Receipt Date: 20090911
  Transmission Date: 20100115
  Serious: Yes (Hospitalization, Disabling, Other)
  Sender: FDA-Public Use
  Company Number: None

PATIENT
  Sex: Female
  Weight: 83.2 kg

DRUGS (15)
  1. FOSAMAX [Suspect]
     Indication: OSTEOPENIA
     Dosage: FOSAMAX 70 MG ONCE WEEKLY ORAL
     Route: 048
     Dates: start: 19980101
  2. FOSAMAX [Suspect]
     Indication: OSTEOPENIA
     Dosage: FOSAMAX 70 MG ONCE WEEKLY ORAL
     Route: 048
     Dates: start: 20071001
  3. SYNTHROID [Concomitant]
  4. OMEPRAZOLE [Concomitant]
  5. HYZAAR [Concomitant]
  6. SINGULAIR [Concomitant]
  7. ASPIRIN [Concomitant]
  8. CITRACAL + D [Concomitant]
  9. GLUCOSAMINE/CHONDROITIN/MSM [Concomitant]
  10. SENNA C [Concomitant]
  11. OCULARPROTECT [Concomitant]
  12. ADVAIR HFA [Concomitant]
  13. FLUTICAZONE PROPRIONATE [Concomitant]
  14. VENTOLIN [Concomitant]
  15. VITAMIN D3 [Concomitant]

REACTIONS (4)
  - FEMUR FRACTURE [None]
  - GAIT DISTURBANCE [None]
  - PAIN IN EXTREMITY [None]
  - PATHOLOGICAL FRACTURE [None]
